FAERS Safety Report 14935039 (Version 1)
Quarter: 2018Q2

REPORT INFORMATION
  Report Type: Spontaneous
  Country: US (occurrence: US)
  Receive Date: 20180524
  Receipt Date: 20180524
  Transmission Date: 20180711
  Serious: Yes (Other)
  Sender: FDA-Public Use
  Company Number: US-BAYER-2018-094747

PATIENT
  Age: 48 Year
  Sex: Female

DRUGS (1)
  1. KYLEENA [Suspect]
     Active Substance: LEVONORGESTREL
     Indication: ABDOMINAL PAIN LOWER
     Dosage: 17.5 MCG/24HR, CONT
     Route: 015

REACTIONS (5)
  - Neck pain [None]
  - Pain [None]
  - Medical device pain [None]
  - Genital haemorrhage [None]
  - Intervertebral disc protrusion [None]
